FAERS Safety Report 5132253-9 (Version None)
Quarter: 2006Q4

REPORT INFORMATION
  Report Type: 
  Country: None (occurrence: None)
  Receive Date: 20061017
  Receipt Date: 20061002
  Transmission Date: 20070319
  Serious: Yes (Other)
  Sender: FDA-Public Use
  Company Number: 2006-01439

PATIENT
  Age: 65 Year
  Sex: Female
  Weight: 92.1 kg

DRUGS (3)
  1. VELCADE [Suspect]
     Indication: LUNG NEOPLASM MALIGNANT
     Dosage: 1.30 MG/M2
  2. HYDROCHLOROTHIAZIDE [Concomitant]
  3. VERAPAMIL [Concomitant]

REACTIONS (4)
  - DYSPNOEA [None]
  - EYE INFECTION [None]
  - HELICOBACTER GASTRITIS [None]
  - HELICOBACTER INFECTION [None]
